FAERS Safety Report 18131154 (Version 1)
Quarter: 2020Q3

REPORT INFORMATION
  Report Type: Spontaneous
  Country: AE (occurrence: AE)
  Receive Date: 20200810
  Receipt Date: 20200810
  Transmission Date: 20201103
  Serious: Yes (Other)
  Sender: FDA-Public Use
  Company Number: AE-ELI_LILLY_AND_COMPANY-AE202007013422

PATIENT
  Age: 53 Year
  Sex: Female

DRUGS (2)
  1. ABEMACICLIB [Suspect]
     Active Substance: ABEMACICLIB
     Indication: BREAST CANCER
     Dosage: UNK UNK, UNKNOWN
     Route: 065
  2. FULVESTRANT. [Concomitant]
     Active Substance: FULVESTRANT

REACTIONS (4)
  - Thyroid mass [Unknown]
  - Leukopenia [Unknown]
  - Pleural disorder [Unknown]
  - Blood creatinine increased [Unknown]
